FAERS Safety Report 6210958-6 (Version None)
Quarter: 2009Q2

REPORT INFORMATION
  Report Type: 
  Country: None (occurrence: None)
  Receive Date: 20090528
  Receipt Date: 20090528
  Transmission Date: 20091009
  Serious: No
  Sender: FDA-Public Use
  Company Number: None

PATIENT
  Age: 27 Year
  Sex: Female
  Weight: 90.7194 kg

DRUGS (4)
  1. TOPIRAMATE [Suspect]
     Indication: CONVULSION
     Dosage: 125 MG TWICE DAILY PO JUST MORE THAN ONE WEEK
     Route: 048
     Dates: start: 20090519, end: 20090527
  2. CYMBALTA [Concomitant]
  3. METHADONE [Concomitant]
  4. LYRICA [Concomitant]

REACTIONS (9)
  - CONVULSION [None]
  - DISTURBANCE IN ATTENTION [None]
  - DIZZINESS [None]
  - DRUG INEFFECTIVE [None]
  - EPILEPTIC AURA [None]
  - EYELID PTOSIS [None]
  - FEELING HOT [None]
  - GAIT DISTURBANCE [None]
  - SPEECH DISORDER [None]
